FAERS Safety Report 6574389-1 (Version None)
Quarter: 2010Q1

REPORT INFORMATION
  Report Type: 
  Country: None (occurrence: None)
  Receive Date: 20100209
  Receipt Date: 20100202
  Transmission Date: 20100710
  Serious: Yes (Hospitalization)
  Sender: FDA-Public Use
  Company Number: US-BIOGENIDEC-2009BI033858

PATIENT
  Age: 52 Year
  Sex: Male

DRUGS (1)
  1. TYSABRI [Suspect]
     Indication: MULTIPLE SCLEROSIS
     Route: 042
     Dates: start: 20070328

REACTIONS (7)
  - DEVICE RELATED SEPSIS [None]
  - HEADACHE [None]
  - MUSCULAR WEAKNESS [None]
  - NEPHROLITHIASIS [None]
  - UROSEPSIS [None]
  - VERTIGO [None]
  - VISUAL IMPAIRMENT [None]
